FAERS Safety Report 13291775 (Version 1)
Quarter: 2017Q1

REPORT INFORMATION
  Report Type: Spontaneous
  Country: FR (occurrence: FR)
  Receive Date: 20170303
  Receipt Date: 20170303
  Transmission Date: 20170428
  Serious: Yes (Other)
  Sender: FDA-Public Use
  Company Number: FR-AMGEN-FRASP2017031890

PATIENT
  Age: 67 Year
  Sex: Male

DRUGS (6)
  1. TERALITHE [Concomitant]
     Active Substance: LITHIUM CARBONATE
     Dosage: 2 TABLETS IN THE EVENING
  2. ALLOPURINOL. [Concomitant]
     Active Substance: ALLOPURINOL
     Dosage: 1 TABLET PER DAY
  3. IRBESARTAN. [Concomitant]
     Active Substance: IRBESARTAN
     Dosage: 1 TABLET PER DAY
  4. COMBODART [Concomitant]
     Active Substance: DUTASTERIDE\TAMSULOSIN
     Dosage: UNK
  5. ENBREL [Suspect]
     Active Substance: ETANERCEPT
     Indication: PSORIASIS
     Dosage: UNK
     Route: 065
     Dates: start: 20150729, end: 201609
  6. NEBIVOLOL. [Concomitant]
     Active Substance: NEBIVOLOL
     Dosage: 1 TABLET IN THE MORNING

REACTIONS (2)
  - Feeling abnormal [Recovered/Resolved]
  - Malaise [Recovered/Resolved]

NARRATIVE: CASE EVENT DATE: 201609
